FAERS Safety Report 4853740-4 (Version None)
Quarter: 2005Q4

REPORT INFORMATION
  Report Type: 
  Country: None (occurrence: None)
  Receive Date: 20051212
  Receipt Date: 20051128
  Transmission Date: 20060501
  Serious: Yes (Other)
  Sender: FDA-Public Use
  Company Number: 2005-11-1620

PATIENT
  Age: 11 Year
  Sex: Male

DRUGS (1)
  1. CLARITIN-D 24 HOUR [Suspect]
     Indication: SINUSITIS
     Dosage: 1 TAB TWICE ORAL
     Route: 048
     Dates: start: 20051120, end: 20051123

REACTIONS (2)
  - GRAND MAL CONVULSION [None]
  - MONOPLEGIA [None]
